FAERS Safety Report 12602374 (Version 3)
Quarter: 2016Q3

REPORT INFORMATION
  Report Type: Spontaneous
  Country: US (occurrence: US)
  Receive Date: 20160728
  Receipt Date: 20160823
  Transmission Date: 20161109
  Serious: No
  Sender: FDA-Public Use
  Company Number: US-PFIZER INC-2016362557

PATIENT
  Age: 78 Year
  Sex: Male

DRUGS (10)
  1. AGGRENOX [Concomitant]
     Active Substance: ASPIRIN\DIPYRIDAMOLE
     Dosage: 25 MG-200 MG ORAL CAPSULE, WEEKLY (EVERY 7 DAYS)
  2. LYRICA [Suspect]
     Active Substance: PREGABALIN
     Dosage: 25 MG, 3X/DAY
  3. ASPIRIN /00002701/ [Concomitant]
     Active Substance: ASPIRIN
     Dosage: 81 MG, UNK
  4. OMEPRAZOLE. [Concomitant]
     Active Substance: OMEPRAZOLE
     Dosage: 20.6 MG, DAILY
     Route: 048
  5. AMBIEN [Concomitant]
     Active Substance: ZOLPIDEM TARTRATE
     Indication: SLEEP DISORDER
     Dosage: 5 MG, (1 TABLET), BEDTIME AS NEEDED
     Route: 048
  6. LYRICA [Suspect]
     Active Substance: PREGABALIN
     Indication: TOXIC NEUROPATHY
     Dosage: UNK
  7. LYRICA [Suspect]
     Active Substance: PREGABALIN
     Dosage: 50 MG (TWO 25 MG), 3X/DAY
  8. NUCYNTA [Concomitant]
     Active Substance: TAPENTADOL HYDROCHLORIDE
     Dosage: 100 MG (1 TABLET), 4X/DAY (EVERY 6 HOURS)
     Route: 048
  9. DARATUMUMAB [Concomitant]
     Active Substance: DARATUMUMAB
     Dosage: 20 MG/ML, EVERY 4 WEEKS
     Route: 042
  10. AMLODIPINE [Concomitant]
     Active Substance: AMLODIPINE BESYLATE
     Dosage: 5 UNK, UNK

REACTIONS (2)
  - Somnolence [Unknown]
  - Product use issue [Unknown]
